FAERS Safety Report 12774653 (Version 1)
Quarter: 2016Q3

REPORT INFORMATION
  Report Type: Spontaneous
  Country: US (occurrence: US)
  Receive Date: 20160923
  Receipt Date: 20160923
  Transmission Date: 20161109
  Serious: No
  Sender: FDA-Public Use
  Company Number: US-ENDO PHARMACEUTICALS INC.-2015-004595

PATIENT
  Age: 63 Year
  Sex: Female
  Weight: 63.56 kg

DRUGS (1)
  1. ALPRAZOLAM TABLETS [Suspect]
     Active Substance: ALPRAZOLAM
     Indication: ANXIETY
     Route: 048
     Dates: start: 201510

REACTIONS (2)
  - Pruritus [Not Recovered/Not Resolved]
  - Formication [Not Recovered/Not Resolved]

NARRATIVE: CASE EVENT DATE: 201510
